FAERS Safety Report 11684958 (Version 2)
Quarter: 2015Q4

REPORT INFORMATION
  Report Type: Spontaneous
  Country: US (occurrence: US)
  Receive Date: 20151030
  Receipt Date: 20151118
  Transmission Date: 20160304
  Serious: Yes (Other)
  Sender: FDA-Public Use
  Company Number: US-PAR PHARMACEUTICAL COMPANIES-2015SCPR014435

PATIENT

DRUGS (1)
  1. PROPAFENONE HCL ER [Suspect]
     Active Substance: PROPAFENONE
     Indication: ATRIAL FIBRILLATION
     Dosage: 1 DF, BID, ONE CAPSULE IN MORNING AND ONE CAPSULE AT NIGHT
     Route: 048
     Dates: start: 20150929, end: 20151020

REACTIONS (6)
  - Disease recurrence [Recovered/Resolved]
  - Atrial fibrillation [Recovered/Resolved]
  - Product quality issue [Unknown]
  - Product quality issue [None]
  - Drug ineffective [Unknown]
  - Product substitution issue [None]

NARRATIVE: CASE EVENT DATE: 201510
